FAERS Safety Report 5646503-3 (Version None)
Quarter: 2008Q1

REPORT INFORMATION
  Report Type: 
  Country: None (occurrence: None)
  Receive Date: 20080228
  Receipt Date: 20080228
  Transmission Date: 20080703
  Serious: Yes (Hospitalization)
  Sender: FDA-Public Use
  Company Number: None

PATIENT
  Sex: Male
  Weight: 102.5129 kg

DRUGS (6)
  1. VASOTEC [Suspect]
     Indication: HYPERTENSION
     Dosage: PO PRIOR TO ADMISSION
     Route: 048
  2. ALDOMET [Concomitant]
  3. PROCARDIA XL [Concomitant]
  4. ADVAIR DISKUS 100/50 [Concomitant]
  5. AMOXIL [Concomitant]
  6. TUSSIONEX SUSPENSION [Concomitant]

REACTIONS (3)
  - ANGIOEDEMA [None]
  - PAIN [None]
  - TREATMENT NONCOMPLIANCE [None]
